FAERS Safety Report 8676638 (Version 2)
Quarter: 2012Q4

REPORT INFORMATION
  Report Type: 
  Country: US (occurrence: US)
  Receive Date: 20120723
  Receipt Date: 20121029
  Transmission Date: 20130627
  Serious: No
  Sender: FDA-Public Use
  Company Number: US-009507513-1207USA005283

PATIENT
  Sex: Female
  Weight: 85.26 kg

DRUGS (2)
  1. JANUMET [Suspect]
     Indication: DIABETES MELLITUS
     Dosage: UNK
     Route: 048
  2. JANUVIA [Suspect]
     Indication: DIABETES MELLITUS
     Dosage: 100 mg, qd
     Dates: start: 20120503, end: 20120711

REACTIONS (2)
  - Blood glucose abnormal [Unknown]
  - Abdominal pain [Unknown]
